FAERS Safety Report 6270223-8 (Version None)
Quarter: 2009Q3

REPORT INFORMATION
  Report Type: 
  Country: None (occurrence: None)
  Receive Date: 20090716
  Receipt Date: 20090623
  Transmission Date: 20100115
  Serious: No
  Sender: FDA-Public Use
  Company Number: US-BAYER-200911953BCC

PATIENT
  Sex: Female
  Weight: 68 kg

DRUGS (1)
  1. MIDOL [Suspect]
     Indication: MUSCLE SPASMS
     Dosage: TOTAL DAILY DOSE: 440 MG  UNIT DOSE: 220 MG
     Route: 048
     Dates: start: 20090622, end: 20090623

REACTIONS (4)
  - ABDOMINAL PAIN UPPER [None]
  - DYSMENORRHOEA [None]
  - DYSPEPSIA [None]
  - VOMITING [None]
